FAERS Safety Report 11595012 (Version 1)
Quarter: 2015Q4

REPORT INFORMATION
  Report Type: Spontaneous
  Country: US (occurrence: US)
  Receive Date: 20151005
  Receipt Date: 20151005
  Transmission Date: 20160304
  Serious: Yes (Hospitalization, Other)
  Sender: FDA-Public Use
  Company Number: US-DSJP-DSU-2015-118904

PATIENT

DRUGS (3)
  1. BENICAR [Suspect]
     Active Substance: OLMESARTAN MEDOXOMIL
     Indication: HYPERTENSION
     Dosage: 40 MG, QD
     Dates: start: 201104, end: 201503
  2. BENICAR HCT [Suspect]
     Active Substance: HYDROCHLOROTHIAZIDE\OLMESARTAN MEDOXOMIL
     Indication: HYPERTENSION
     Dosage: 40/12.5 MG, QD
     Route: 048
     Dates: start: 20130606, end: 20140918
  3. BENICAR [Suspect]
     Active Substance: OLMESARTAN MEDOXOMIL
     Dosage: 20 MG, QD
     Dates: start: 20110219, end: 201104

REACTIONS (19)
  - Pyelonephritis acute [Unknown]
  - Flatulence [Unknown]
  - Chronic gastritis [Unknown]
  - Acute kidney injury [Unknown]
  - Gallbladder enlargement [Unknown]
  - Faecal incontinence [Unknown]
  - Decreased appetite [Unknown]
  - Malabsorption [Unknown]
  - Mesenteric panniculitis [Unknown]
  - Hypokalaemia [Recovered/Resolved]
  - Hiatus hernia [Unknown]
  - Nephrotic syndrome [Unknown]
  - Glomerulonephritis membranoproliferative [Unknown]
  - Chronic kidney disease [Unknown]
  - Duodenitis [Unknown]
  - Colon adenoma [Recovered/Resolved]
  - Haemorrhoids [Unknown]
  - Abdominal lymphadenopathy [Unknown]
  - Abdominal pain upper [Unknown]

NARRATIVE: CASE EVENT DATE: 201210
